FAERS Safety Report 4868631-2 (Version None)
Quarter: 2005Q4

REPORT INFORMATION
  Report Type: 
  Country: None (occurrence: None)
  Receive Date: 20051223
  Receipt Date: 20051221
  Transmission Date: 20060501
  Serious: Yes (Hospitalization, Other)
  Sender: FDA-Public Use
  Company Number: 2004031351

PATIENT
  Age: 55 Year
  Sex: Male

DRUGS (40)
  1. LIPITOR [Suspect]
     Indication: HYPERCHOLESTEROLAEMIA
     Dosage: 10 MG (1 IN 1 D), ORAL
     Route: 048
     Dates: start: 20031217, end: 20050111
  2. AMLODIPINE BESILATE (AMLODIPINE) [Concomitant]
  3. NIFEDIPINE [Concomitant]
  4. TOCOPHERYL NICOTINATE (TOCOPHERYL NICOTINATE) [Concomitant]
  5. TEPRENONE (TEPRENONE) [Concomitant]
  6. CINAL (ASCORBIC ACID, CALCIUM PANTOTHENATE) [Concomitant]
  7. ISOSORBIDE DINITRATE [Concomitant]
  8. NICORANDIL (NICORANDIL) [Concomitant]
  9. NITROGLYCERIN [Concomitant]
  10. PILSICAINIDE HYDROCHLORIDE (PILSICAINIDE HYDROCHLORIDE) [Concomitant]
  11. FLECAINIDE ACETATE [Concomitant]
  12. ETIZOLAM (ETIZOLAM) [Concomitant]
  13. FLUVOXAMINE MALEATE (FLUVOXAMNE MALEATE) [Concomitant]
  14. POLYCARBOPHIL CALCIUM (POLYCARBOPHIL CALCIUM) [Concomitant]
  15. LANSOPRAZOLE [Concomitant]
  16. MAGNESIUM OXIDE (MAGNESIUM OXIDE) [Concomitant]
  17. SENNOSIDES (SENNOSIDE A+B) [Concomitant]
  18. SODIUM PICOSULFATE (SODIUM PICOSULFATE) [Concomitant]
  19. GLYCERIN (GLYCERIN) [Concomitant]
  20. MECOBALAMIN (MECOBALAMIN) [Concomitant]
  21. LOXOPROFEN SODIUM (LOXOPROFEN SODIUM) [Concomitant]
  22. BUFFERIN (ACETYLSALICYIC ACID, ALUMINIUM GLYCINATE, MAGNESIUM CARBONAT [Concomitant]
  23. KETOPROFEN [Concomitant]
  24. IBUDILAST (IBUDILAST) [Concomitant]
  25. ZONISAMIDE [Concomitant]
  26. CYANOCOBALAMIN [Concomitant]
  27. TAMSULOSIN HYDROCHLORIDE (TAMSULOSIN HYDROCHLORIDE) [Concomitant]
  28. SULPIRIDE (SULPIRIDE) [Concomitant]
  29. ALPRAZOLAM [Concomitant]
  30. ZOLPIDEM TARTRATE [Concomitant]
  31. QUAZEPAM [Concomitant]
  32. FLUNITRAZEPAM (FLUNITRAZEPAM) [Concomitant]
  33. HALOXAZOLAM (HALOXAZOLAM) [Concomitant]
  34. NITRAZEPAM [Concomitant]
  35. BIPIRIDEN HYDROCHLORIDE (BIPERIDEN HYDROCHLORIDE) [Concomitant]
  36. TRIAZOLAM [Concomitant]
  37. VEGETAMIN B (CHLORPROMAZINE HYDROCHLORIDE, PHENOBARBITAL, PROMETHAZINE [Concomitant]
  38. RISPERIDONE [Concomitant]
  39. PROMETHAZINE [Concomitant]
  40. SULPIRIDE (SULPIRIDE) [Concomitant]

REACTIONS (7)
  - ABDOMINAL PAIN UPPER [None]
  - CONCOMITANT DISEASE AGGRAVATED [None]
  - DEPRESSION [None]
  - NAUSEA [None]
  - NEUROSIS [None]
  - RETINAL TEAR [None]
  - ROAD TRAFFIC ACCIDENT [None]
